FAERS Safety Report 18471137 (Version 2)
Quarter: 2021Q4

REPORT INFORMATION
  Report Type: Spontaneous
  Country: FR (occurrence: FR)
  Receive Date: 20201106
  Receipt Date: 20211029
  Transmission Date: 20220304
  Serious: Yes (Hospitalization)
  Sender: FDA-Public Use
  Company Number: FR-SUN PHARMACEUTICAL INDUSTRIES LTD-2020RR-266578

PATIENT
  Age: 88 Year
  Sex: Female
  Weight: 71 kg

DRUGS (6)
  1. ALLOPURINOL [Suspect]
     Active Substance: ALLOPURINOL
     Indication: Gout
     Dosage: 200 MILLIGRAM, DAILY
     Route: 048
     Dates: start: 20201001, end: 20201004
  2. FIDAXOMICIN [Suspect]
     Active Substance: FIDAXOMICIN
     Indication: Clostridium difficile colitis
     Dosage: 400 MILLIGRAM, DAILY
     Route: 048
     Dates: start: 20200820, end: 20200830
  3. BIFONAZOLE [Suspect]
     Active Substance: BIFONAZOLE
     Indication: Dermatophytosis
     Dosage: ()
     Route: 003
     Dates: start: 20200929
  4. COLCHICINE\OPIUM\TIEMONIUM METHYLSULFATE [Suspect]
     Active Substance: COLCHICINE\OPIUM\TIEMONIUM METHYLSULFATE
     Indication: Gout
     Dosage: 2 MILLIGRAM, DAILY
     Route: 048
     Dates: start: 20201001
  5. PREGABALIN [Concomitant]
     Active Substance: PREGABALIN
     Indication: Product used for unknown indication
     Dosage: 75 KILO-INTERNATIONAL UNIT, DAILY
     Route: 048
     Dates: start: 20200715
  6. DESLORATADINE [Concomitant]
     Active Substance: DESLORATADINE
     Indication: Product used for unknown indication
     Dosage: 5 MILLIGRAM, DAILY
     Route: 048

REACTIONS (3)
  - Pruritus [Not Recovered/Not Resolved]
  - Rash erythematous [Not Recovered/Not Resolved]
  - Rash maculo-papular [Not Recovered/Not Resolved]

NARRATIVE: CASE EVENT DATE: 20201003
